FAERS Safety Report 19172668 (Version 1)
Quarter: 2021Q2

REPORT INFORMATION
  Report Type: Spontaneous
  Country: US (occurrence: US)
  Receive Date: 20210422
  Receipt Date: 20210422
  Transmission Date: 20210717
  Serious: Yes (Hospitalization)
  Sender: FDA-Public Use
  Company Number: None

PATIENT
  Age: 10 Year
  Sex: Female

DRUGS (21)
  1. AMOX/K CLAV [Concomitant]
     Active Substance: AMOXICILLIN\CLAVULANATE POTASSIUM
  2. SOLU?CORTEF [Concomitant]
     Active Substance: HYDROCORTISONE SODIUM SUCCINATE
  3. CYPROHEPTAD [Concomitant]
  4. HYDROCORT (HYDROCORTISONE) [Concomitant]
     Active Substance: HYDROCORTISONE
  5. ONDANSETRON [Concomitant]
     Active Substance: ONDANSETRON
  6. PREDNISOLONE. [Concomitant]
     Active Substance: PREDNISOLONE
  7. SCOPOLAMINE DIS [Concomitant]
  8. CIPROFLOXACIN. [Concomitant]
     Active Substance: CIPROFLOXACIN
  9. SOD CHLORIDE NEB 0.9% [Concomitant]
  10. SILDENAFIL 20MG TAB [Suspect]
     Active Substance: SILDENAFIL
     Indication: PULMONARY ARTERIAL HYPERTENSION
     Route: 048
     Dates: start: 20190410
  11. ALBUTEROL NEB [Concomitant]
     Active Substance: ALBUTEROL
  12. MONTELUKAST [Concomitant]
     Active Substance: MONTELUKAST SODIUM
  13. POLYETH GLYC [Concomitant]
     Active Substance: POLYETHYLENE GLYCOLS
  14. ERYTHROM ETH [Concomitant]
  15. LIDO/PRILOCN CRE [Concomitant]
  16. OMEPRAZOLE. [Concomitant]
     Active Substance: OMEPRAZOLE
  17. ALBUTEROL HFA [Concomitant]
     Active Substance: ALBUTEROL SULFATE
  18. PREDNISONE. [Concomitant]
     Active Substance: PREDNISONE
  19. BUDESONIDE. [Concomitant]
     Active Substance: BUDESONIDE
  20. IPRATROPIUM [Concomitant]
     Active Substance: IPRATROPIUM
  21. NYSTATIN CRE [Concomitant]

REACTIONS (1)
  - Dyspnoea [None]

NARRATIVE: CASE EVENT DATE: 20210420
